FAERS Safety Report 12282643 (Version 1)
Quarter: 2016Q2

REPORT INFORMATION
  Report Type: Spontaneous
  Country: US (occurrence: US)
  Receive Date: 20160419
  Receipt Date: 20160419
  Transmission Date: 20160815
  Serious: Yes (Hospitalization)
  Sender: FDA-Public Use
  Company Number: US-B.I. PHARMACEUTICALS,INC./RIDGEFIELD-2016-BI-23434BP

PATIENT
  Sex: Male

DRUGS (4)
  1. SPIRIVA [Suspect]
     Active Substance: TIOTROPIUM BROMIDE MONOHYDRATE
     Indication: EMPHYSEMA
     Dosage: 18 MCG
     Route: 055
     Dates: start: 2010, end: 201603
  2. PERFORMIST [Concomitant]
     Indication: EMPHYSEMA
     Dosage: 40 MCG
     Route: 055
  3. ALBUTEROL. [Concomitant]
     Active Substance: ALBUTEROL
     Indication: EMPHYSEMA
     Route: 055
  4. BUDESONIDE. [Concomitant]
     Active Substance: BUDESONIDE
     Indication: EMPHYSEMA
     Route: 055

REACTIONS (1)
  - Emphysema [Recovered/Resolved]

NARRATIVE: CASE EVENT DATE: 2015
